FAERS Safety Report 9424293 (Version 3)
Quarter: 2013Q3

REPORT INFORMATION
  Report Type: Spontaneous
  Country: US (occurrence: US)
  Receive Date: 20130729
  Receipt Date: 20130930
  Transmission Date: 20140515
  Serious: Yes (Other)
  Sender: FDA-Public Use
  Company Number: US-JNJFOC-20130713463

PATIENT
  Age: 49 Year
  Sex: Male
  Weight: 117.94 kg

DRUGS (18)
  1. GLIPIZIDE [Concomitant]
     Route: 048
     Dates: start: 20130430
  2. DILAUDID [Concomitant]
     Indication: PAIN
     Route: 048
  3. NOVOLOG [Concomitant]
     Indication: DIABETES MELLITUS
     Dosage: 12-20 UNITS BEFORE MEALS
     Route: 058
     Dates: start: 20130709
  4. LORAZEPAM [Concomitant]
     Indication: ANXIETY
     Route: 048
     Dates: start: 20130529
  5. METFORMIN [Concomitant]
     Route: 048
     Dates: start: 20130430
  6. POTASSIUM CHLORIDE [Concomitant]
     Route: 048
  7. LORTAB 5-500 [Concomitant]
     Indication: PAIN
     Dosage: 1 EACH PO HSP
     Route: 048
     Dates: start: 20130523
  8. KLOR-CON [Concomitant]
     Dosage: 10 MEQ
     Route: 048
     Dates: start: 20130514
  9. CYMBALTA [Concomitant]
     Route: 048
     Dates: start: 20130502
  10. ASPIRIN [Concomitant]
     Route: 048
     Dates: start: 20121022
  11. TRIAMCINOLONE [Concomitant]
     Indication: RASH
     Dosage: 80 GM, 1-3 X D PRN
     Route: 061
     Dates: start: 20130604
  12. RISPERDAL CONSTA [Suspect]
     Indication: SCHIZOPHRENIA
     Route: 030
     Dates: start: 20111023, end: 20130528
  13. RISPERDAL CONSTA [Suspect]
     Indication: SCHIZOPHRENIA
     Route: 030
     Dates: start: 2010, end: 2011
  14. RISPERDAL [Suspect]
     Indication: SCHIZOPHRENIA
     Dosage: 1 TABLET AT BEDTIME
     Route: 048
     Dates: start: 20130806
  15. RISPERDAL [Suspect]
     Indication: SCHIZOPHRENIA
     Dosage: AT BEDTIME
     Route: 048
     Dates: start: 201306
  16. ATENOLOL [Concomitant]
     Route: 048
     Dates: start: 20130430
  17. ENALAPRIL MALEATE [Concomitant]
     Route: 048
     Dates: start: 20130430
  18. FUROSEMIDE [Concomitant]
     Route: 048
     Dates: start: 20130430

REACTIONS (9)
  - Diabetes mellitus [Not Recovered/Not Resolved]
  - Product contamination [Unknown]
  - Pain in extremity [Unknown]
  - Erythema [Recovered/Resolved]
  - Depressed mood [Unknown]
  - Pancreatic disorder [Not Recovered/Not Resolved]
  - Pharyngeal oedema [Unknown]
  - Urticaria [Recovered/Resolved]
  - Cyanosis [Unknown]
